FAERS Safety Report 7057208-9 (Version None)
Quarter: 2010Q4

REPORT INFORMATION
  Report Type: 
  Country: None (occurrence: None)
  Receive Date: 20101022
  Receipt Date: 20101012
  Transmission Date: 20110411
  Serious: Yes (Hospitalization)
  Sender: FDA-Public Use
  Company Number: PHHY2010FR68831

PATIENT
  Sex: Female

DRUGS (1)
  1. VOLTAREN [Suspect]
     Indication: SCIATICA
     Dosage: 75 MG, BID
     Route: 048
     Dates: start: 20100502, end: 20100512

REACTIONS (2)
  - HYPERGAMMAGLOBULINAEMIA [None]
  - KERATITIS [None]
